FAERS Safety Report 14352401 (Version 1)
Quarter: 2018Q1

REPORT INFORMATION
  Report Type: Spontaneous
  Country: JP (occurrence: JP)
  Receive Date: 20180104
  Receipt Date: 20180104
  Transmission Date: 20180509
  Serious: Yes (Death, Other)
  Sender: FDA-Public Use
  Company Number: JP-PFIZER INC-2018002623

PATIENT
  Age: 68 Year
  Sex: Male

DRUGS (1)
  1. IRINOTECAN HCL [Suspect]
     Active Substance: IRINOTECAN HYDROCHLORIDE
     Indication: HEAD AND NECK CANCER
     Dosage: UNK

REACTIONS (1)
  - Pseudomembranous colitis [Fatal]
